FAERS Safety Report 16053464 (Version 1)
Quarter: 2019Q1

REPORT INFORMATION
  Report Type: Spontaneous
  Country: FR (occurrence: FR)
  Receive Date: 20190308
  Receipt Date: 20190308
  Transmission Date: 20190418
  Serious: Yes (Hospitalization)
  Sender: FDA-Public Use
  Company Number: FR-MYLANLABS-2019M1021289

PATIENT
  Age: 22 Year
  Sex: Female

DRUGS (5)
  1. ENDOXAN                            /00021101/ [Suspect]
     Active Substance: CYCLOPHOSPHAMIDE
     Indication: NEUROBLASTOMA
     Dosage: 1500 MILLIGRAM/SQ. METER, CYCLE
     Route: 042
     Dates: start: 19971028, end: 1998
  2. ADRIAMYCIN [Suspect]
     Active Substance: DOXORUBICIN HYDROCHLORIDE
     Indication: NEUROBLASTOMA
     Dosage: 60 MILLIGRAM/SQ. METER, CYCLE
     Route: 042
     Dates: start: 19971028, end: 1998
  3. ONCOVIN [Suspect]
     Active Substance: VINCRISTINE SULFATE
     Indication: NEUROBLASTOMA
     Dosage: 3 MILLIGRAM/SQ. METER, CYCLE
     Route: 042
     Dates: start: 19971028, end: 1998
  4. CARBOPLATIN. [Suspect]
     Active Substance: CARBOPLATIN
     Indication: NEUROBLASTOMA
     Dosage: 600 MILLIGRAM/SQ. METER, CYCLE
     Route: 042
     Dates: start: 19970917, end: 1998
  5. VEPESIDE [Suspect]
     Active Substance: ETOPOSIDE
     Indication: NEUROBLASTOMA
     Dosage: 450 MILLIGRAM/SQ. METER, CYCLE
     Route: 042
     Dates: start: 19970917, end: 1998

REACTIONS (1)
  - Hodgkin^s disease [Not Recovered/Not Resolved]

NARRATIVE: CASE EVENT DATE: 20180615
